FAERS Safety Report 8269606-6 (Version None)
Quarter: 2012Q2

REPORT INFORMATION
  Report Type: 
  Country: None (occurrence: None)
  Receive Date: 20120410
  Receipt Date: 20120402
  Transmission Date: 20120825
  Serious: Yes (Hospitalization)
  Sender: FDA-Public Use
  Company Number: US-BIOGENIDEC-2012BI009280

PATIENT
  Age: 28 Year
  Sex: Female

DRUGS (3)
  1. AMBIEN [Concomitant]
     Indication: SLEEP DISORDER
  2. NORVASC [Concomitant]
  3. TYSABRI [Suspect]
     Indication: MULTIPLE SCLEROSIS
     Route: 042
     Dates: start: 20100405, end: 20120206

REACTIONS (3)
  - PNEUMONIA [None]
  - DECUBITUS ULCER [None]
  - DRUG SPECIFIC ANTIBODY PRESENT [None]
